FAERS Safety Report 10344914 (Version 1)
Quarter: 2014Q3

REPORT INFORMATION
  Report Type: Spontaneous
  Country: US (occurrence: US)
  Receive Date: 20140728
  Receipt Date: 20140728
  Transmission Date: 20150326
  Serious: No
  Sender: FDA-Public Use
  Company Number: US-PFIZER INC-2014206030

PATIENT
  Age: 75 Year
  Sex: Male
  Weight: 74.83 kg

DRUGS (5)
  1. ESZOPICLONE. [Concomitant]
     Active Substance: ESZOPICLONE
     Dosage: 3 MG, UNK
  2. LYRICA [Suspect]
     Active Substance: PREGABALIN
     Dosage: 150 MG (BY TAKING THREE 50MG ), 2X/DAY
     Route: 048
     Dates: start: 2014
  3. LYRICA [Suspect]
     Active Substance: PREGABALIN
     Indication: NEUROPATHY PERIPHERAL
     Dosage: 100 MG (BY TAKING TWO 50MG ), 1X/DAY
     Route: 048
     Dates: start: 201406
  4. OXYCODONE [Concomitant]
     Active Substance: OXYCODONE
     Dosage: 30 MG, UNK
  5. CYCLOBENZAPRINE [Concomitant]
     Active Substance: CYCLOBENZAPRINE
     Dosage: 10 MG, UNK
     Route: 048

REACTIONS (2)
  - Somnolence [Unknown]
  - Drug administration error [Unknown]

NARRATIVE: CASE EVENT DATE: 2014
